FAERS Safety Report 22236886 (Version 1)
Quarter: 2023Q2

REPORT INFORMATION
  Report Type: Spontaneous
  Country: US (occurrence: US)
  Receive Date: 20230420
  Receipt Date: 20230420
  Transmission Date: 20230722
  Serious: Yes (Other)
  Sender: FDA-Public Use
  Company Number: US-FOUNDATIONCONSUMERHC-2023-US-008107

PATIENT
  Age: 61 Year
  Sex: Male
  Weight: 122.47 kg

DRUGS (11)
  1. ANBESOL MAXIMUM STRENGTH LIQUID [Suspect]
     Active Substance: BENZOCAINE
     Indication: Accidental exposure to product
     Dosage: 1/3 OF BOTTLE SPILLED, AND SOME GOT ON HAND
     Route: 061
     Dates: start: 20230331
  2. OZEMPIC [Concomitant]
     Active Substance: SEMAGLUTIDE
  3. TRESIBA [Concomitant]
     Active Substance: INSULIN DEGLUDEC
  4. HUMALOG [Concomitant]
     Active Substance: INSULIN LISPRO
  5. PROPAFENONE [Concomitant]
     Active Substance: PROPAFENONE
  6. an unspecified blood thinner [Concomitant]
  7. GEMFIBROZIL [Concomitant]
     Active Substance: GEMFIBROZIL
  8. SYNJARDY [Concomitant]
     Active Substance: EMPAGLIFLOZIN\METFORMIN HYDROCHLORIDE
  9. BISOPROLOL [Concomitant]
     Active Substance: BISOPROLOL
  10. WARFARIN [Concomitant]
     Active Substance: WARFARIN
  11. omega 3 acid [Concomitant]

REACTIONS (2)
  - Cerebrovascular accident [Unknown]
  - Accidental exposure to product [Recovered/Resolved]

NARRATIVE: CASE EVENT DATE: 20230331
